FAERS Safety Report 9869376 (Version 1)
Quarter: 2014Q1

REPORT INFORMATION
  Report Type: Spontaneous
  Country: US (occurrence: US)
  Receive Date: 20140205
  Receipt Date: 20140205
  Transmission Date: 20141002
  Serious: Yes (Hospitalization)
  Sender: FDA-Public Use
  Company Number: US-JNJFOC-20140200980

PATIENT
  Age: 67 Year
  Sex: Female
  Weight: 80.7 kg

DRUGS (12)
  1. XARELTO [Suspect]
     Indication: CEREBROVASCULAR ACCIDENT PROPHYLAXIS
     Route: 048
  2. XARELTO [Suspect]
     Indication: ATRIAL FIBRILLATION
     Route: 048
  3. TYLENOL [Concomitant]
     Route: 048
  4. ALPRAZOLAM [Concomitant]
     Route: 048
  5. VICODIN [Concomitant]
     Route: 048
  6. OMEPRAZOLE [Concomitant]
     Route: 048
  7. CYMBALTA [Concomitant]
     Route: 048
  8. DIGOXIN [Concomitant]
     Route: 048
  9. ATENOLOL [Concomitant]
     Route: 048
  10. VITAMIN B12 [Concomitant]
     Route: 065
  11. FOLIC ACID [Concomitant]
     Route: 048
  12. DICYCLOMINE [Concomitant]
     Route: 048

REACTIONS (3)
  - Dyspnoea [Unknown]
  - International normalised ratio increased [Unknown]
  - Malaise [Unknown]
